FAERS Safety Report 25093012 (Version 3)
Quarter: 2025Q4

REPORT INFORMATION
  Report Type: Report from Study
  Country: US (occurrence: US)
  Receive Date: 20250319
  Receipt Date: 20251025
  Transmission Date: 20260118
  Serious: Yes (Other)
  Sender: ABBVIE
  Company Number: US-ABBVIE-6177137

PATIENT
  Age: 63 Year
  Sex: Male

DRUGS (4)
  1. RINVOQ [Suspect]
     Active Substance: UPADACITINIB
     Indication: Ankylosing spondylitis
     Dosage: FIRST ADMIN DATE AND END DATE 2025?STRENGTH 15MG
     Route: 048
  2. RINVOQ [Suspect]
     Active Substance: UPADACITINIB
     Indication: Ankylosing spondylitis
     Dosage: STRENGTH 15MG
     Route: 048
     Dates: start: 202411, end: 202502
  3. RINVOQ [Suspect]
     Active Substance: UPADACITINIB
     Indication: Ankylosing spondylitis
     Dosage: FIRST AND LAST ADMIN DATE 2025, 15 MG
     Route: 048
  4. RINVOQ [Suspect]
     Active Substance: UPADACITINIB
     Indication: Ankylosing spondylitis
     Dosage: FIRST ADMIN DATE 2025 STRENGTH 15 MG
     Route: 048

REACTIONS (7)
  - Hernia [Unknown]
  - Carpal tunnel syndrome [Unknown]
  - Back pain [Unknown]
  - Pain [Unknown]
  - Incision site impaired healing [Unknown]
  - Intestinal obstruction [Unknown]
  - Wound dehiscence [Unknown]

NARRATIVE: CASE EVENT DATE: 20250101
